FAERS Safety Report 7774956-3 (Version None)
Quarter: 2011Q3

REPORT INFORMATION
  Report Type: 
  Country: None (occurrence: None)
  Receive Date: 20110923
  Receipt Date: 20110919
  Transmission Date: 20111222
  Serious: Yes (Life-Threatening, Hospitalization, Congenital Anomaly, Other)
  Sender: FDA-Public Use
  Company Number: GXKR2011DE02841

PATIENT
  Sex: Male
  Weight: 3.45 kg

DRUGS (4)
  1. FOLIC ACID [Concomitant]
     Dosage: MATERNAL DOSE: 0.4 MG, DAILY
     Route: 064
  2. THYRONAJOD [Concomitant]
     Dosage: MATERNAL DOSE: 150 UG, DAILY
     Route: 064
  3. SERTRALINE HYDROCHLORIDE [Suspect]
     Dosage: MATERNAL DOSE: 150 MG
     Route: 064
  4. PROMETHAZINE [Suspect]
     Dosage: 30 MG, BID
     Route: 064

REACTIONS (3)
  - FALLOT'S TETRALOGY [None]
  - NEONATAL RESPIRATORY DISTRESS SYNDROME [None]
  - MATERNAL EXPOSURE DURING PREGNANCY [None]
